FAERS Safety Report 13226934 (Version 1)
Quarter: 2017Q1

REPORT INFORMATION
  Report Type: Report from Study
  Country: BR (occurrence: BR)
  Receive Date: 20170213
  Receipt Date: 20170213
  Transmission Date: 20170428
  Serious: Yes (Other)
  Sender: FDA-Public Use
  Company Number: BR-ALEXION-A201305896

PATIENT
  Sex: Male

DRUGS (2)
  1. SOLIRIS [Suspect]
     Active Substance: ECULIZUMAB
     Dosage: UNK
     Route: 065
  2. SOLIRIS [Suspect]
     Active Substance: ECULIZUMAB
     Indication: HAEMOLYTIC URAEMIC SYNDROME
     Dosage: UNK
     Route: 065
     Dates: start: 20130614

REACTIONS (7)
  - Proteinuria [Unknown]
  - Haemolysis [Unknown]
  - Red blood cell schistocytes present [Unknown]
  - Anuria [Unknown]
  - Thrombocytopenia [Unknown]
  - Anaemia [Unknown]
  - Infection [Unknown]
